FAERS Safety Report 8358852-9 (Version None)
Quarter: 2012Q2

REPORT INFORMATION
  Report Type: 
  Country: None (occurrence: None)
  Receive Date: 20120515
  Receipt Date: 20120507
  Transmission Date: 20120825
  Serious: Yes (Hospitalization, Other)
  Sender: FDA-Public Use
  Company Number: DE-BIOGENIDEC-2011BI047645

PATIENT
  Age: 50 Year
  Sex: Female
  Weight: 60 kg

DRUGS (6)
  1. HYDROCHLOROTHIAZIDE [Concomitant]
  2. ESOMEPRAZOLE MAGNESIUM [Concomitant]
  3. PREGABALIN [Concomitant]
     Indication: PAIN
  4. TYSABRI [Suspect]
     Indication: MULTIPLE SCLEROSIS
     Route: 042
     Dates: start: 20071121, end: 20111115
  5. CIPROFLOXACIN [Concomitant]
     Indication: URINARY TRACT INFECTION
  6. ENALAPRIL MALEATE [Concomitant]

REACTIONS (1)
  - B-CELL LYMPHOMA [None]
